FAERS Safety Report 25018233 (Version 1)
Quarter: 2025Q1

REPORT INFORMATION
  Report Type: Spontaneous
  Country: US (occurrence: US)
  Receive Date: 20250227
  Receipt Date: 20250227
  Transmission Date: 20250409
  Serious: No
  Sender: TAKEDA
  Company Number: US-TAKEDA-2025TUS019342

PATIENT
  Age: 78 Year
  Sex: Female
  Weight: 41.99 kg

DRUGS (4)
  1. ARALAST NP [Suspect]
     Active Substance: .ALPHA.1-PROTEINASE INHIBITOR HUMAN
     Indication: Alpha-1 antitrypsin deficiency
     Dosage: 2172 MILLIGRAM, 1/WEEK
     Dates: start: 20250211
  2. ARALAST NP [Suspect]
     Active Substance: .ALPHA.1-PROTEINASE INHIBITOR HUMAN
     Dosage: 2172 MILLIGRAM, 1/WEEK
     Dates: start: 20250218
  3. TELMISARTAN [Concomitant]
     Active Substance: TELMISARTAN
  4. ALBUTEROL [Concomitant]
     Active Substance: ALBUTEROL

REACTIONS (2)
  - Rash pruritic [Unknown]
  - Product quality issue [Unknown]

NARRATIVE: CASE EVENT DATE: 20250211
